FAERS Safety Report 7956533-4 (Version None)
Quarter: 2011Q4

REPORT INFORMATION
  Report Type: 
  Country: None (occurrence: None)
  Receive Date: 20111205
  Receipt Date: 20111123
  Transmission Date: 20120403
  Serious: Yes (Other)
  Sender: FDA-Public Use
  Company Number: US-JNJFOC-20111111512

PATIENT
  Age: 46 Year
  Sex: Female
  Weight: 77.11 kg

DRUGS (5)
  1. VICODIN [Concomitant]
     Indication: PAIN
     Dosage: 7.5/750MG EVERY 2-4 HOURS AS NEEDED ONLY
     Route: 065
     Dates: start: 20111108
  2. PREVACID [Concomitant]
     Route: 065
     Dates: start: 20030101
  3. ROLAIDS MULTI SYMPTOM ANTACID AND ANTI GAS SOFT CHEW FAST ACTING [Suspect]
     Indication: GASTROOESOPHAGEAL REFLUX DISEASE
     Dosage: 1-2 SOFT CHEWS, 2-3 TIMES PER DAY, 2 TO 3 TIMES PER WEEK, UP TO 5 TIMES A WEEK
     Route: 048
  4. ROLAIDS MULTI SYMPTOM ANTACID AND ANTI GAS SOFT CHEW FAST ACTING [Suspect]
     Dosage: 1-2 SOFT CHEWS, 2-3 TIMES PER DAY, 2 TO 3 TIMES PER WEEK, UP TO 5 TIMES A WEEK
     Route: 048
  5. PREVACID [Concomitant]
     Indication: GASTROOESOPHAGEAL REFLUX DISEASE
     Route: 065
     Dates: start: 20030101

REACTIONS (2)
  - NEPHROLITHIASIS [None]
  - OVERDOSE [None]
